FAERS Safety Report 10741517 (Version 1)
Quarter: 2015Q1

REPORT INFORMATION
  Report Type: Spontaneous
  Country: US (occurrence: None)
  Receive Date: 20150123
  Receipt Date: 20150123
  Transmission Date: 20150721
  Serious: Yes (Other)
  Sender: FDA-Public Use
  Company Number: None

PATIENT
  Age: 74 Year
  Sex: Female
  Weight: 58.51 kg

DRUGS (2)
  1. TRAMADOL [Suspect]
     Active Substance: TRAMADOL
     Indication: PAIN
     Dosage: 25MG  PO  Q4H  PRN FOR BREAKTHROUGH PAIN
     Route: 048
     Dates: start: 20140904
  2. TRAMADOL [Suspect]
     Active Substance: TRAMADOL
     Indication: PAIN
     Dosage: 25MG  PO  Q4H  PRN MODERATE PAIN
     Route: 048
     Dates: start: 20140904

REACTIONS (2)
  - Paraesthesia oral [None]
  - Dysphagia [None]

NARRATIVE: CASE EVENT DATE: 20140904
